FAERS Safety Report 5460590-7 (Version None)
Quarter: 2007Q3

REPORT INFORMATION
  Report Type: 
  Country: None (occurrence: None)
  Receive Date: 20070919
  Receipt Date: 20070910
  Transmission Date: 20080115
  Serious: Yes (Other)
  Sender: FDA-Public Use
  Company Number: US-PFIZER INC-2007066258

PATIENT
  Sex: Female
  Weight: 66.818 kg

DRUGS (3)
  1. NORVASC [Suspect]
     Indication: HYPERTENSION
     Route: 048
     Dates: start: 20040601, end: 20070701
  2. AMLODIPINE [Suspect]
     Indication: HYPERTENSION
     Route: 048
  3. XANAX [Concomitant]

REACTIONS (11)
  - ABDOMINAL PAIN UPPER [None]
  - ARTHRALGIA [None]
  - BLOOD PRESSURE INADEQUATELY CONTROLLED [None]
  - BURNING SENSATION [None]
  - CONSTIPATION [None]
  - FEELING ABNORMAL [None]
  - GASTROOESOPHAGEAL REFLUX DISEASE [None]
  - GROIN PAIN [None]
  - INSOMNIA [None]
  - MALAISE [None]
  - PELVIC PAIN [None]
